FAERS Safety Report 25124911 (Version 1)
Quarter: 2025Q1

REPORT INFORMATION
  Report Type: Spontaneous
  Country: US (occurrence: None)
  Receive Date: 20250325
  Receipt Date: 20250325
  Transmission Date: 20250409
  Serious: Yes (Hospitalization)
  Sender: FDA-CTU
  Company Number: None

PATIENT
  Age: 66 Year
  Sex: Female

DRUGS (4)
  1. CAPECITABINE [Suspect]
     Active Substance: CAPECITABINE
     Indication: Rectal cancer
     Dosage: FREQUENCY : TWICE A DAY;?
     Route: 048
     Dates: start: 20250211, end: 20250324
  2. Diphenoxylate/Atropine 2.5mg tablets [Concomitant]
  3. Prochlorperazine 10mg tablets [Concomitant]
     Dates: start: 20250212
  4. ONDANSETRON [Concomitant]
     Active Substance: ONDANSETRON
     Dates: start: 20250212

REACTIONS (2)
  - Dyspnoea [None]
  - Blood potassium decreased [None]

NARRATIVE: CASE EVENT DATE: 20250313
